FAERS Safety Report 5629492-7 (Version None)
Quarter: 2008Q1

REPORT INFORMATION
  Report Type: 
  Country: None (occurrence: None)
  Receive Date: 20080218
  Receipt Date: 20080128
  Transmission Date: 20080703
  Serious: No
  Sender: FDA-Public Use
  Company Number: US-BAXTER-2008BH000934

PATIENT
  Age: 32 Year
  Sex: Female

DRUGS (12)
  1. HEPARIN SODIUM [Suspect]
     Indication: PROPHYLAXIS
     Route: 042
     Dates: start: 20080111, end: 20080111
  2. HEPARIN SODIUM [Suspect]
     Route: 042
     Dates: start: 20080111, end: 20080111
  3. WARFARIN SODIUM [Concomitant]
     Indication: DRUG USE FOR UNKNOWN INDICATION
     Route: 048
  4. WARFARIN SODIUM [Concomitant]
     Route: 048
  5. LISINOPRIL [Concomitant]
     Indication: HYPERTENSION
     Route: 048
  6. NEUPOGEN [Concomitant]
     Indication: ANAEMIA
     Dosage: DOSE UNIT:UNKNOWN
     Route: 058
  7. PEPCID [Concomitant]
     Indication: DRUG USE FOR UNKNOWN INDICATION
     Route: 048
  8. PROCARDIA [Concomitant]
     Indication: DRUG USE FOR UNKNOWN INDICATION
     Route: 048
  9. SENSIPAR [Concomitant]
     Indication: RENAL FAILURE
     Route: 048
  10. PHOSRENAL [Concomitant]
     Indication: RENAL FAILURE
     Route: 048
  11. RENAGEL [Concomitant]
     Indication: RENAL FAILURE
     Route: 048
  12. DOVONEX [Concomitant]
     Indication: PSORIASIS
     Route: 061

REACTIONS (3)
  - FLUSHING [None]
  - NAUSEA [None]
  - TACHYCARDIA [None]
